FAERS Safety Report 7011262-9 (Version None)
Quarter: 2010Q3

REPORT INFORMATION
  Report Type: 
  Country: None (occurrence: None)
  Receive Date: 20100922
  Receipt Date: 20100922
  Transmission Date: 20110219
  Serious: Yes (Other)
  Sender: FDA-Public Use
  Company Number: None

PATIENT
  Age: 50 Year
  Sex: Female
  Weight: 61.2356 kg

DRUGS (1)
  1. CHLORHEXIDINE GLUCONATE [Suspect]
     Indication: GINGIVITIS
     Dosage: 1/2 OUNCE TWICE DAILY DENTAL  (1 TIME)
     Route: 004
     Dates: start: 20100913, end: 20100913

REACTIONS (3)
  - AGEUSIA [None]
  - DYSGEUSIA [None]
  - GLOSSODYNIA [None]
